FAERS Safety Report 6403102-3 (Version None)
Quarter: 2009Q4

REPORT INFORMATION
  Report Type: 
  Country: None (occurrence: None)
  Receive Date: 20091016
  Receipt Date: 20091014
  Transmission Date: 20100525
  Serious: Yes (Death)
  Sender: FDA-Public Use
  Company Number: PHEH2009US10278

PATIENT
  Sex: Female

DRUGS (9)
  1. EXJADE [Suspect]
     Indication: IRON OVERLOAD
     Dosage: 1000 MG, QD
     Route: 048
     Dates: start: 20090101
  2. EXJADE [Suspect]
     Indication: MYELODYSPLASTIC SYNDROME
  3. OMEPRAZOLE [Concomitant]
     Indication: DYSPEPSIA
     Dosage: 20 MG, QD
     Route: 048
  4. LASIX [Concomitant]
     Indication: HYPERTENSION
     Dosage: 40 MG, QD
  5. ENALAPRIL MALEATE [Concomitant]
     Indication: HYPERTENSION
     Dosage: 120 MG, QD
  6. SUCRALFATE [Concomitant]
     Indication: DYSPEPSIA
     Dosage: 1 G, TID
  7. COREG [Concomitant]
     Indication: HYPERTENSION
     Dosage: 12.5 MG, QD
  8. LATANOPROST [Concomitant]
     Indication: GLAUCOMA
     Dosage: 0.005 %, UNK
     Route: 047
  9. SINEMET [Concomitant]
     Indication: PARKINSON'S DISEASE
     Dosage: 100/25 MG Q4 HRS

REACTIONS (2)
  - DEATH [None]
  - HEADACHE [None]
